FAERS Safety Report 25014220 (Version 3)
Quarter: 2025Q2

REPORT INFORMATION
  Report Type: Spontaneous
  Country: CA (occurrence: CA)
  Receive Date: 20250226
  Receipt Date: 20250613
  Transmission Date: 20250717
  Serious: Yes (Death, Other)
  Sender: MYLAN
  Company Number: CA-MYLANLABS-2025M1016868

PATIENT
  Age: 46 Year
  Sex: Male

DRUGS (32)
  1. VENLAFAXINE [Suspect]
     Active Substance: VENLAFAXINE HYDROCHLORIDE
     Indication: Product used for unknown indication
  2. VENLAFAXINE [Suspect]
     Active Substance: VENLAFAXINE HYDROCHLORIDE
     Route: 065
  3. VENLAFAXINE [Suspect]
     Active Substance: VENLAFAXINE HYDROCHLORIDE
     Route: 065
  4. VENLAFAXINE [Suspect]
     Active Substance: VENLAFAXINE HYDROCHLORIDE
  5. CAFFEINE [Suspect]
     Active Substance: CAFFEINE
     Indication: Product used for unknown indication
  6. CAFFEINE [Suspect]
     Active Substance: CAFFEINE
     Route: 065
  7. CAFFEINE [Suspect]
     Active Substance: CAFFEINE
     Route: 065
  8. CAFFEINE [Suspect]
     Active Substance: CAFFEINE
  9. DIPHENHYDRAMINE [Suspect]
     Active Substance: DIPHENHYDRAMINE
     Indication: Product used for unknown indication
  10. DIPHENHYDRAMINE [Suspect]
     Active Substance: DIPHENHYDRAMINE
     Route: 065
  11. DIPHENHYDRAMINE [Suspect]
     Active Substance: DIPHENHYDRAMINE
     Route: 065
  12. DIPHENHYDRAMINE [Suspect]
     Active Substance: DIPHENHYDRAMINE
  13. AMPHETAMINE [Suspect]
     Active Substance: AMPHETAMINE
     Indication: Product used for unknown indication
  14. AMPHETAMINE [Suspect]
     Active Substance: AMPHETAMINE
     Route: 065
  15. AMPHETAMINE [Suspect]
     Active Substance: AMPHETAMINE
     Route: 065
  16. AMPHETAMINE [Suspect]
     Active Substance: AMPHETAMINE
  17. BUPRENORPHINE [Suspect]
     Active Substance: BUPRENORPHINE
     Indication: Product used for unknown indication
  18. BUPRENORPHINE [Suspect]
     Active Substance: BUPRENORPHINE
     Route: 065
  19. BUPRENORPHINE [Suspect]
     Active Substance: BUPRENORPHINE
     Route: 065
  20. BUPRENORPHINE [Suspect]
     Active Substance: BUPRENORPHINE
  21. FENTANYL [Suspect]
     Active Substance: FENTANYL
     Indication: Product used for unknown indication
  22. FENTANYL [Suspect]
     Active Substance: FENTANYL
     Route: 065
  23. FENTANYL [Suspect]
     Active Substance: FENTANYL
     Route: 065
  24. FENTANYL [Suspect]
     Active Substance: FENTANYL
  25. METHAMPHETAMINE [Suspect]
     Active Substance: METHAMPHETAMINE
     Indication: Product used for unknown indication
  26. METHAMPHETAMINE [Suspect]
     Active Substance: METHAMPHETAMINE
     Route: 065
  27. METHAMPHETAMINE [Suspect]
     Active Substance: METHAMPHETAMINE
     Route: 065
  28. METHAMPHETAMINE [Suspect]
     Active Substance: METHAMPHETAMINE
  29. NALOXONE [Suspect]
     Active Substance: NALOXONE
     Indication: Product used for unknown indication
  30. NALOXONE [Suspect]
     Active Substance: NALOXONE
     Route: 065
  31. NALOXONE [Suspect]
     Active Substance: NALOXONE
     Route: 065
  32. NALOXONE [Suspect]
     Active Substance: NALOXONE

REACTIONS (3)
  - Death [Fatal]
  - Toxicity to various agents [Fatal]
  - Overdose [Fatal]
